FAERS Safety Report 6061948-8 (Version None)
Quarter: 2009Q1

REPORT INFORMATION
  Report Type: 
  Country: None (occurrence: None)
  Receive Date: 20090202
  Receipt Date: 20090120
  Transmission Date: 20090719
  Serious: Yes (Hospitalization)
  Sender: FDA-Public Use
  Company Number: JP-AMGEN-US329442

PATIENT
  Sex: Male
  Weight: 76 kg

DRUGS (29)
  1. PANITUMUMAB [Suspect]
     Indication: SQUAMOUS CELL CARCINOMA
     Route: 041
     Dates: start: 20081217, end: 20081217
  2. CISPLATIN [Suspect]
     Route: 041
     Dates: start: 20081217, end: 20081217
  3. CALCIUM LACTATE [Concomitant]
     Indication: MINERAL SUPPLEMENTATION
     Route: 048
  4. FLUOROURACIL [Concomitant]
     Indication: SQUAMOUS CELL CARCINOMA
     Route: 041
     Dates: start: 20081217
  5. FLUOROURACIL [Concomitant]
     Route: 041
     Dates: start: 20090109, end: 20090113
  6. MUCODYNE [Concomitant]
     Indication: SPUTUM RETENTION
     Route: 048
  7. BIOFERMIN [Concomitant]
     Indication: DISBACTERIOSIS
     Route: 048
  8. KYTRIL [Concomitant]
     Indication: PROPHYLAXIS OF NAUSEA AND VOMITING
     Route: 041
     Dates: start: 20090109, end: 20090109
  9. PRIMPERAN TAB [Concomitant]
     Indication: PROPHYLAXIS OF NAUSEA AND VOMITING
     Route: 042
     Dates: start: 20090110, end: 20090112
  10. LASIX [Concomitant]
     Indication: POLYURIA
     Route: 042
     Dates: start: 20090110, end: 20090110
  11. LASIX [Concomitant]
     Route: 042
     Dates: start: 20090116, end: 20090116
  12. SOLU-CORTEF [Concomitant]
     Indication: ANTIPYRESIS
     Route: 042
     Dates: start: 20090115
  13. CALONAL [Concomitant]
     Indication: ANTIPYRESIS
     Route: 048
     Dates: start: 20090115
  14. ATARAX [Concomitant]
     Indication: INSOMNIA
     Route: 042
     Dates: start: 20090115
  15. KERATINAMIN [Concomitant]
     Indication: RASH
     Route: 062
     Dates: start: 20090114
  16. BISOLVON [Concomitant]
     Indication: SPUTUM RETENTION
     Route: 055
  17. EMPYNASE [Concomitant]
  18. DEXAMETHASONE SODIUM PHOSPHATE [Concomitant]
     Route: 042
     Dates: start: 20090109, end: 20090112
  19. ELECTROLYTES NOS [Concomitant]
     Route: 041
     Dates: start: 20090109, end: 20090117
  20. LACTATED RINGER'S [Concomitant]
     Route: 041
     Dates: start: 20090105, end: 20090117
  21. CALCIUM CHLORIDE ANHYDROUS [Concomitant]
     Route: 042
     Dates: start: 20090105, end: 20090110
  22. ASPARTATE POTASSIUM [Concomitant]
     Route: 041
     Dates: start: 20090108
  23. MAGNESIUM SULFATE [Concomitant]
     Dates: start: 20090110
  24. SODIUM CHLORIDE [Concomitant]
     Route: 042
     Dates: start: 20090106, end: 20090116
  25. CALCIUM GLUCONATE [Concomitant]
     Route: 042
     Dates: start: 20090113, end: 20090115
  26. FLURBIPROFEN [Concomitant]
     Route: 041
     Dates: start: 20090115
  27. ANTIBIOTIC NOS [Concomitant]
     Route: 041
     Dates: start: 20090115
  28. RINDERON-V [Concomitant]
     Route: 062
     Dates: start: 20090114
  29. ORCIPRENALINE SULFATE [Concomitant]
     Route: 055

REACTIONS (1)
  - RENAL IMPAIRMENT [None]
